FAERS Safety Report 5986377-4 (Version None)
Quarter: 2008Q4

REPORT INFORMATION
  Report Type: 
  Country: None (occurrence: None)
  Receive Date: 20081209
  Receipt Date: 20081128
  Transmission Date: 20090506
  Serious: Yes (Death)
  Sender: FDA-Public Use
  Company Number: JP-NOVOPROD-281928

PATIENT
  Age: 73 Year
  Sex: Female
  Weight: 39 kg

DRUGS (6)
  1. LEVEMIR [Suspect]
     Indication: TYPE 1 DIABETES MELLITUS
     Dosage: 10 IU, QD
     Route: 058
     Dates: start: 20081107, end: 20081114
  2. LEVEMIR [Suspect]
     Dosage: 13 IU, QD
     Route: 058
     Dates: start: 20081114, end: 20081125
  3. HUMALOG [Concomitant]
     Indication: TYPE 1 DIABETES MELLITUS
     Dosage: 9 IU, QD
     Route: 058
     Dates: start: 20070518, end: 20081125
  4. MIGLITOL [Concomitant]
     Indication: TYPE 1 DIABETES MELLITUS
     Dosage: 3 TAB, QD
     Route: 048
     Dates: start: 20080226, end: 20081125
  5. TAKEPRON [Concomitant]
     Dosage: 1 TAB, QD
     Route: 048
     Dates: start: 20080509, end: 20081125
  6. LANTUS [Concomitant]
     Dosage: 10 IU, QD
     Dates: start: 20070515, end: 20081106

REACTIONS (1)
  - CORONARY ARTERY DISEASE [None]
